FAERS Safety Report 16498817 (Version 1)
Quarter: 2019Q2

REPORT INFORMATION
  Report Type: Spontaneous
  Country: DK (occurrence: DK)
  Receive Date: 20190630
  Receipt Date: 20190630
  Transmission Date: 20190711
  Serious: Yes (Other)
  Sender: FDA-Public Use
  Company Number: DK-JNJFOC-20190426761

PATIENT
  Age: 30 Year
  Sex: Female

DRUGS (3)
  1. RISPERDAL [Suspect]
     Active Substance: RISPERIDONE
     Indication: TIC
     Route: 048
     Dates: start: 20150722, end: 20181017
  2. CILEST [Suspect]
     Active Substance: ETHINYL ESTRADIOL\NORGESTIMATE
     Indication: MENSTRUATION IRREGULAR
     Dosage: STRENGTH : 250 +50 MICROGRAM
     Route: 048
     Dates: start: 201701, end: 201703
  3. SERTRALINE [Concomitant]
     Active Substance: SERTRALINE HYDROCHLORIDE
     Indication: DEPRESSION
     Dosage: TREATMENT STARTED BEFORE 01-MAY-2014
     Route: 048
     Dates: end: 20181017

REACTIONS (5)
  - Arthralgia [Not Recovered/Not Resolved]
  - Thrombosis [Recovered/Resolved with Sequelae]
  - Off label use [Unknown]
  - Peripheral swelling [Not Recovered/Not Resolved]
  - Product use in unapproved indication [Unknown]

NARRATIVE: CASE EVENT DATE: 20170216
